FAERS Safety Report 15251241 (Version 1)
Quarter: 2018Q3

REPORT INFORMATION
  Report Type: Spontaneous
  Country: US (occurrence: US)
  Receive Date: 20180807
  Receipt Date: 20180807
  Transmission Date: 20181010
  Serious: No
  Sender: FDA-Public Use
  Company Number: US-BAUSCH-BL-2018-019490

PATIENT
  Sex: Female

DRUGS (2)
  1. RETIN?A MICRO [Suspect]
     Active Substance: TRETINOIN
     Indication: THERAPEUTIC SKIN CARE TOPICAL
     Route: 065
  2. RETIN?A MICRO [Suspect]
     Active Substance: TRETINOIN
     Indication: OFF LABEL USE

REACTIONS (5)
  - Device malfunction [Unknown]
  - Skin exfoliation [Not Recovered/Not Resolved]
  - Skin disorder [Unknown]
  - Off label use [Unknown]
  - Dry skin [Not Recovered/Not Resolved]
